FAERS Safety Report 23556688 (Version 2)
Quarter: 2024Q2

REPORT INFORMATION
  Report Type: Spontaneous
  Country: CA (occurrence: None)
  Receive Date: 20240223
  Receipt Date: 20240408
  Transmission Date: 20240716
  Serious: Yes (Death, Life-Threatening, Hospitalization, Disabling, Other)
  Sender: FDA-Public Use
  Company Number: CA-Orion Corporation ORION PHARMA-TREX2024-0035

PATIENT
  Age: 44 Year
  Sex: Female
  Weight: 70 kg

DRUGS (301)
  1. METHOTREXATE [Suspect]
     Active Substance: METHOTREXATE
     Indication: Rheumatoid arthritis
  2. METHOTREXATE [Suspect]
     Active Substance: METHOTREXATE
  3. METHOTREXATE [Suspect]
     Active Substance: METHOTREXATE
  4. METHOTREXATE [Suspect]
     Active Substance: METHOTREXATE
  5. METHOTREXATE [Suspect]
     Active Substance: METHOTREXATE
  6. METHOTREXATE [Suspect]
     Active Substance: METHOTREXATE
  7. METHOTREXATE [Suspect]
     Active Substance: METHOTREXATE
  8. METHOTREXATE [Suspect]
     Active Substance: METHOTREXATE
  9. METHOTREXATE [Suspect]
     Active Substance: METHOTREXATE
  10. METHOTREXATE [Suspect]
     Active Substance: METHOTREXATE
  11. METHOTREXATE [Suspect]
     Active Substance: METHOTREXATE
  12. METHOTREXATE [Suspect]
     Active Substance: METHOTREXATE
  13. METHOTREXATE [Suspect]
     Active Substance: METHOTREXATE
  14. METHOTREXATE [Suspect]
     Active Substance: METHOTREXATE
  15. METHOTREXATE [Suspect]
     Active Substance: METHOTREXATE
  16. METHOTREXATE [Suspect]
     Active Substance: METHOTREXATE
  17. METHOTREXATE [Suspect]
     Active Substance: METHOTREXATE
  18. METHOTREXATE [Suspect]
     Active Substance: METHOTREXATE
  19. METHOTREXATE [Suspect]
     Active Substance: METHOTREXATE
  20. METHOTREXATE [Suspect]
     Active Substance: METHOTREXATE
  21. METHOTREXATE [Suspect]
     Active Substance: METHOTREXATE
  22. METHOTREXATE [Suspect]
     Active Substance: METHOTREXATE
  23. METHOTREXATE [Suspect]
     Active Substance: METHOTREXATE
  24. METHOTREXATE [Suspect]
     Active Substance: METHOTREXATE
  25. ESTRADIOL [Suspect]
     Active Substance: ESTRADIOL
     Indication: Product used for unknown indication
  26. ACETAMINOPHEN [Suspect]
     Active Substance: ACETAMINOPHEN
     Indication: Rheumatoid arthritis
  27. ACETAMINOPHEN [Suspect]
     Active Substance: ACETAMINOPHEN
  28. ACETAMINOPHEN\OXYCODONE HYDROCHLORIDE [Suspect]
     Active Substance: ACETAMINOPHEN\OXYCODONE HYDROCHLORIDE
     Indication: Product used for unknown indication
  29. ACTEMRA [Suspect]
     Active Substance: TOCILIZUMAB
     Indication: Rheumatoid arthritis
  30. ACTEMRA [Suspect]
     Active Substance: TOCILIZUMAB
  31. ACTEMRA [Suspect]
     Active Substance: TOCILIZUMAB
  32. ACTEMRA [Suspect]
     Active Substance: TOCILIZUMAB
  33. ACTEMRA [Suspect]
     Active Substance: TOCILIZUMAB
  34. ACTEMRA [Suspect]
     Active Substance: TOCILIZUMAB
  35. ACTEMRA [Suspect]
     Active Substance: TOCILIZUMAB
  36. ACTEMRA [Suspect]
     Active Substance: TOCILIZUMAB
  37. ACTEMRA [Suspect]
     Active Substance: TOCILIZUMAB
  38. ACTEMRA [Suspect]
     Active Substance: TOCILIZUMAB
  39. ACTEMRA [Suspect]
     Active Substance: TOCILIZUMAB
  40. ACTEMRA [Suspect]
     Active Substance: TOCILIZUMAB
  41. ACTEMRA [Suspect]
     Active Substance: TOCILIZUMAB
  42. ACTEMRA [Suspect]
     Active Substance: TOCILIZUMAB
  43. ACTEMRA [Suspect]
     Active Substance: TOCILIZUMAB
  44. ACTEMRA [Suspect]
     Active Substance: TOCILIZUMAB
  45. ACTEMRA [Suspect]
     Active Substance: TOCILIZUMAB
  46. ACTEMRA [Suspect]
     Active Substance: TOCILIZUMAB
  47. ACTEMRA [Suspect]
     Active Substance: TOCILIZUMAB
  48. ACTEMRA [Suspect]
     Active Substance: TOCILIZUMAB
  49. ALENDRONATE SODIUM [Suspect]
     Active Substance: ALENDRONATE SODIUM
     Indication: Rheumatoid arthritis
  50. PREDNISONE [Suspect]
     Active Substance: PREDNISONE
     Indication: Systemic lupus erythematosus
  51. PREDNISONE [Suspect]
     Active Substance: PREDNISONE
     Indication: Synovitis
  52. PREDNISONE [Suspect]
     Active Substance: PREDNISONE
     Indication: Rheumatoid arthritis
  53. PREDNISONE [Suspect]
     Active Substance: PREDNISONE
     Indication: Psoriatic arthropathy
  54. PREDNISONE [Suspect]
     Active Substance: PREDNISONE
     Indication: Pemphigus
  55. PREDNISONE [Suspect]
     Active Substance: PREDNISONE
     Indication: Inflammation
  56. PREDNISONE [Suspect]
     Active Substance: PREDNISONE
     Indication: Bursitis
  57. ARAVA [Suspect]
     Active Substance: LEFLUNOMIDE
     Indication: Rheumatoid arthritis
  58. ARAVA [Suspect]
     Active Substance: LEFLUNOMIDE
  59. ARAVA [Suspect]
     Active Substance: LEFLUNOMIDE
  60. ARAVA [Suspect]
     Active Substance: LEFLUNOMIDE
  61. ARAVA [Suspect]
     Active Substance: LEFLUNOMIDE
  62. ARAVA [Suspect]
     Active Substance: LEFLUNOMIDE
  63. ARAVA [Suspect]
     Active Substance: LEFLUNOMIDE
  64. CETIRIZINE HYDROCHLORIDE [Suspect]
     Active Substance: CETIRIZINE HYDROCHLORIDE
     Indication: Rheumatoid arthritis
  65. CETIRIZINE HYDROCHLORIDE [Suspect]
     Active Substance: CETIRIZINE HYDROCHLORIDE
  66. CETIRIZINE HYDROCHLORIDE [Suspect]
     Active Substance: CETIRIZINE HYDROCHLORIDE
  67. CETIRIZINE HYDROCHLORIDE [Suspect]
     Active Substance: CETIRIZINE HYDROCHLORIDE
  68. CETIRIZINE HYDROCHLORIDE [Suspect]
     Active Substance: CETIRIZINE HYDROCHLORIDE
  69. CETIRIZINE HYDROCHLORIDE [Suspect]
     Active Substance: CETIRIZINE HYDROCHLORIDE
  70. CETIRIZINE HYDROCHLORIDE [Suspect]
     Active Substance: CETIRIZINE HYDROCHLORIDE
  71. CETIRIZINE HYDROCHLORIDE [Suspect]
     Active Substance: CETIRIZINE HYDROCHLORIDE
  72. CETIRIZINE HYDROCHLORIDE [Suspect]
     Active Substance: CETIRIZINE HYDROCHLORIDE
  73. CETIRIZINE HYDROCHLORIDE [Suspect]
     Active Substance: CETIRIZINE HYDROCHLORIDE
  74. CETIRIZINE HYDROCHLORIDE [Suspect]
     Active Substance: CETIRIZINE HYDROCHLORIDE
  75. CETIRIZINE HYDROCHLORIDE [Suspect]
     Active Substance: CETIRIZINE HYDROCHLORIDE
  76. CHLORHEXIDINE [Suspect]
     Active Substance: CHLORHEXIDINE\CHLORHEXIDINE GLUCONATE
     Indication: Product used for unknown indication
  77. CHLORHEXIDINE [Suspect]
     Active Substance: CHLORHEXIDINE\CHLORHEXIDINE GLUCONATE
  78. CHLORHEXIDINE [Suspect]
     Active Substance: CHLORHEXIDINE\CHLORHEXIDINE GLUCONATE
  79. CHLORHEXIDINE [Suspect]
     Active Substance: CHLORHEXIDINE\CHLORHEXIDINE GLUCONATE
  80. CHLORHEXIDINE [Suspect]
     Active Substance: CHLORHEXIDINE\CHLORHEXIDINE GLUCONATE
  81. CHLORHEXIDINE [Suspect]
     Active Substance: CHLORHEXIDINE\CHLORHEXIDINE GLUCONATE
  82. HYDROCORTISONE [Suspect]
     Active Substance: HYDROCORTISONE
     Indication: Rheumatoid arthritis
  83. HYDROCORTISONE [Suspect]
     Active Substance: HYDROCORTISONE
  84. HYDROCORTISONE [Suspect]
     Active Substance: HYDROCORTISONE
  85. HYDROCORTISONE [Suspect]
     Active Substance: HYDROCORTISONE
  86. HYDROCORTISONE [Suspect]
     Active Substance: HYDROCORTISONE
  87. HYDROCORTISONE [Suspect]
     Active Substance: HYDROCORTISONE
  88. CORTISONE ACETATE [Suspect]
     Active Substance: CORTISONE ACETATE
     Indication: Rheumatoid arthritis
  89. CORTISONE ACETATE [Suspect]
     Active Substance: CORTISONE ACETATE
  90. CORTISONE ACETATE [Suspect]
     Active Substance: CORTISONE ACETATE
  91. CORTISONE ACETATE [Suspect]
     Active Substance: CORTISONE ACETATE
  92. CORTISONE ACETATE [Suspect]
     Active Substance: CORTISONE ACETATE
  93. CORTISONE ACETATE [Suspect]
     Active Substance: CORTISONE ACETATE
  94. CORTISONE ACETATE [Suspect]
     Active Substance: CORTISONE ACETATE
  95. CORTISONE ACETATE [Suspect]
     Active Substance: CORTISONE ACETATE
  96. CORTISONE ACETATE [Suspect]
     Active Substance: CORTISONE ACETATE
  97. CORTISONE ACETATE [Suspect]
     Active Substance: CORTISONE ACETATE
  98. CORTISONE ACETATE [Suspect]
     Active Substance: CORTISONE ACETATE
  99. DESOXIMETASONE [Suspect]
     Active Substance: DESOXIMETASONE
     Indication: Rheumatoid arthritis
  100. DESOXIMETASONE [Suspect]
     Active Substance: DESOXIMETASONE
  101. DESOXIMETASONE [Suspect]
     Active Substance: DESOXIMETASONE
  102. DESOXIMETASONE [Suspect]
     Active Substance: DESOXIMETASONE
  103. DESOXIMETASONE [Suspect]
     Active Substance: DESOXIMETASONE
  104. DESOXIMETASONE [Suspect]
     Active Substance: DESOXIMETASONE
  105. DICLOFENAC [Suspect]
     Active Substance: DICLOFENAC
     Indication: Product used for unknown indication
  106. DICLOFENAC [Suspect]
     Active Substance: DICLOFENAC
  107. DICLOFENAC SODIUM [Suspect]
     Active Substance: DICLOFENAC\DICLOFENAC SODIUM
     Indication: Rheumatoid arthritis
  108. DICLOFENAC SODIUM [Suspect]
     Active Substance: DICLOFENAC\DICLOFENAC SODIUM
  109. DICLOFENAC SODIUM [Suspect]
     Active Substance: DICLOFENAC\DICLOFENAC SODIUM
  110. ENBREL [Suspect]
     Active Substance: ETANERCEPT
     Indication: Rheumatoid arthritis
  111. ENBREL [Suspect]
     Active Substance: ETANERCEPT
     Indication: Psoriatic arthropathy
  112. ENBREL [Suspect]
     Active Substance: ETANERCEPT
  113. ENBREL [Suspect]
     Active Substance: ETANERCEPT
  114. ENBREL [Suspect]
     Active Substance: ETANERCEPT
  115. ENBREL [Suspect]
     Active Substance: ETANERCEPT
  116. ENBREL [Suspect]
     Active Substance: ETANERCEPT
  117. ENBREL [Suspect]
     Active Substance: ETANERCEPT
  118. ENBREL [Suspect]
     Active Substance: ETANERCEPT
  119. FOLIC ACID [Suspect]
     Active Substance: FOLIC ACID
     Indication: Rheumatoid arthritis
  120. FOLIC ACID [Suspect]
     Active Substance: FOLIC ACID
  121. FOLIC ACID [Suspect]
     Active Substance: FOLIC ACID
  122. FOLIC ACID [Suspect]
     Active Substance: FOLIC ACID
  123. FOLIC ACID [Suspect]
     Active Substance: FOLIC ACID
  124. FOLIC ACID [Suspect]
     Active Substance: FOLIC ACID
  125. FOLIC ACID [Suspect]
     Active Substance: FOLIC ACID
  126. FOLIC ACID [Suspect]
     Active Substance: FOLIC ACID
  127. FOLIC ACID [Suspect]
     Active Substance: FOLIC ACID
  128. FOLIC ACID [Suspect]
     Active Substance: FOLIC ACID
  129. FOLIC ACID [Suspect]
     Active Substance: FOLIC ACID
  130. FOSAMAX [Suspect]
     Active Substance: ALENDRONATE SODIUM
     Indication: Rheumatoid arthritis
  131. FOSAMAX [Suspect]
     Active Substance: ALENDRONATE SODIUM
  132. FOSAMAX [Suspect]
     Active Substance: ALENDRONATE SODIUM
  133. FOSAMAX [Suspect]
     Active Substance: ALENDRONATE SODIUM
  134. FOSAMAX [Suspect]
     Active Substance: ALENDRONATE SODIUM
  135. FOSAMAX [Suspect]
     Active Substance: ALENDRONATE SODIUM
  136. FOSAMAX [Suspect]
     Active Substance: ALENDRONATE SODIUM
  137. FOSAMAX [Suspect]
     Active Substance: ALENDRONATE SODIUM
  138. FOSAMAX [Suspect]
     Active Substance: ALENDRONATE SODIUM
  139. FOSAMAX [Suspect]
     Active Substance: ALENDRONATE SODIUM
  140. FOSAMAX [Suspect]
     Active Substance: ALENDRONATE SODIUM
  141. FOSAMAX [Suspect]
     Active Substance: ALENDRONATE SODIUM
  142. HUMIRA [Suspect]
     Active Substance: ADALIMUMAB
     Indication: Rheumatoid arthritis
  143. HUMIRA [Suspect]
     Active Substance: ADALIMUMAB
     Indication: Psoriatic arthropathy
  144. HUMIRA [Suspect]
     Active Substance: ADALIMUMAB
  145. HUMIRA [Suspect]
     Active Substance: ADALIMUMAB
  146. HUMIRA [Suspect]
     Active Substance: ADALIMUMAB
  147. HUMIRA [Suspect]
     Active Substance: ADALIMUMAB
  148. HUMIRA [Suspect]
     Active Substance: ADALIMUMAB
  149. HYDROXYCHLOROQUINE [Suspect]
     Active Substance: HYDROXYCHLOROQUINE
     Indication: Rheumatoid arthritis
  150. HYDROXYCHLOROQUINE [Suspect]
     Active Substance: HYDROXYCHLOROQUINE
  151. HYDROXYCHLOROQUINE [Suspect]
     Active Substance: HYDROXYCHLOROQUINE
  152. HYDROXYCHLOROQUINE [Suspect]
     Active Substance: HYDROXYCHLOROQUINE
  153. HYDROXYCHLOROQUINE [Suspect]
     Active Substance: HYDROXYCHLOROQUINE
  154. HYDROXYCHLOROQUINE SULFATE [Suspect]
     Active Substance: HYDROXYCHLOROQUINE SULFATE
     Indication: Systemic lupus erythematosus
  155. HYDROXYCHLOROQUINE SULFATE [Suspect]
     Active Substance: HYDROXYCHLOROQUINE SULFATE
     Indication: Rheumatoid arthritis
  156. HYDROXYCHLOROQUINE SULFATE [Suspect]
     Active Substance: HYDROXYCHLOROQUINE SULFATE
  157. HYDROXYCHLOROQUINE SULFATE [Suspect]
     Active Substance: HYDROXYCHLOROQUINE SULFATE
  158. HYDROXYCHLOROQUINE SULFATE [Suspect]
     Active Substance: HYDROXYCHLOROQUINE SULFATE
  159. HYDROXYCHLOROQUINE SULFATE [Suspect]
     Active Substance: HYDROXYCHLOROQUINE SULFATE
  160. HYDROXYCHLOROQUINE SULFATE [Suspect]
     Active Substance: HYDROXYCHLOROQUINE SULFATE
  161. HYDROXYCHLOROQUINE SULFATE [Suspect]
     Active Substance: HYDROXYCHLOROQUINE SULFATE
  162. HYDROXYCHLOROQUINE SULFATE [Suspect]
     Active Substance: HYDROXYCHLOROQUINE SULFATE
  163. HYDROXYCHLOROQUINE SULFATE [Suspect]
     Active Substance: HYDROXYCHLOROQUINE SULFATE
  164. HYDROXYCHLOROQUINE SULFATE [Suspect]
     Active Substance: HYDROXYCHLOROQUINE SULFATE
  165. HYDROXYCHLOROQUINE SULFATE [Suspect]
     Active Substance: HYDROXYCHLOROQUINE SULFATE
  166. HYDROXYCHLOROQUINE SULFATE [Suspect]
     Active Substance: HYDROXYCHLOROQUINE SULFATE
  167. HYDROXYCHLOROQUINE SULFATE [Suspect]
     Active Substance: HYDROXYCHLOROQUINE SULFATE
  168. HYDROXYCHLOROQUINE SULFATE [Suspect]
     Active Substance: HYDROXYCHLOROQUINE SULFATE
  169. HYDROXYCHLOROQUINE SULFATE [Suspect]
     Active Substance: HYDROXYCHLOROQUINE SULFATE
  170. HYDROXYCHLOROQUINE SULFATE [Suspect]
     Active Substance: HYDROXYCHLOROQUINE SULFATE
  171. HYDROXYCHLOROQUINE SULFATE [Suspect]
     Active Substance: HYDROXYCHLOROQUINE SULFATE
  172. LEFLUNOMIDE [Suspect]
     Active Substance: LEFLUNOMIDE
     Indication: Rheumatoid arthritis
  173. LEFLUNOMIDE [Suspect]
     Active Substance: LEFLUNOMIDE
  174. LEFLUNOMIDE [Suspect]
     Active Substance: LEFLUNOMIDE
  175. LEFLUNOMIDE [Suspect]
     Active Substance: LEFLUNOMIDE
  176. LEFLUNOMIDE [Suspect]
     Active Substance: LEFLUNOMIDE
  177. LEFLUNOMIDE [Suspect]
     Active Substance: LEFLUNOMIDE
  178. ORENCIA [Suspect]
     Active Substance: ABATACEPT
     Indication: Rheumatoid arthritis
  179. ORENCIA [Suspect]
     Active Substance: ABATACEPT
     Indication: Psoriatic arthropathy
  180. ORENCIA [Suspect]
     Active Substance: ABATACEPT
  181. ORENCIA [Suspect]
     Active Substance: ABATACEPT
  182. ORENCIA [Suspect]
     Active Substance: ABATACEPT
  183. ORENCIA [Suspect]
     Active Substance: ABATACEPT
  184. ORENCIA [Suspect]
     Active Substance: ABATACEPT
  185. ORENCIA [Suspect]
     Active Substance: ABATACEPT
  186. ORENCIA [Suspect]
     Active Substance: ABATACEPT
  187. ORENCIA [Suspect]
     Active Substance: ABATACEPT
  188. ORENCIA [Suspect]
     Active Substance: ABATACEPT
  189. ORENCIA [Suspect]
     Active Substance: ABATACEPT
  190. OXYCODONE [Suspect]
     Active Substance: OXYCODONE\OXYCODONE HYDROCHLORIDE
     Indication: Product used for unknown indication
  191. OXYCODONE [Suspect]
     Active Substance: OXYCODONE\OXYCODONE HYDROCHLORIDE
  192. OXYCODONE HYDROCHLORIDE [Suspect]
     Active Substance: OXYCODONE HYDROCHLORIDE
     Indication: Product used for unknown indication
  193. OXYCODONE TEREPHTHALATE [Suspect]
     Active Substance: OXYCODONE TEREPHTHALATE
     Indication: Product used for unknown indication
  194. PHTHALYLSULFATHIAZOLE [Suspect]
     Active Substance: PHTHALYLSULFATHIAZOLE
     Indication: Rheumatoid arthritis
  195. PHTHALYLSULFATHIAZOLE [Suspect]
     Active Substance: PHTHALYLSULFATHIAZOLE
  196. PHTHALYLSULFATHIAZOLE [Suspect]
     Active Substance: PHTHALYLSULFATHIAZOLE
  197. PREDNISONE [Suspect]
     Active Substance: PREDNISONE
     Indication: Systemic lupus erythematosus
  198. PREDNISONE [Suspect]
     Active Substance: PREDNISONE
     Indication: Synovitis
  199. PREDNISONE [Suspect]
     Active Substance: PREDNISONE
     Indication: Rheumatoid arthritis
  200. PREDNISONE [Suspect]
     Active Substance: PREDNISONE
     Indication: Psoriatic arthropathy
  201. PREDNISONE [Suspect]
     Active Substance: PREDNISONE
     Indication: Arthritis
  202. PREDNISONE [Suspect]
     Active Substance: PREDNISONE
  203. PREDNISONE [Suspect]
     Active Substance: PREDNISONE
  204. PREDNISONE [Suspect]
     Active Substance: PREDNISONE
  205. PREDNISONE [Suspect]
     Active Substance: PREDNISONE
  206. PREDNISONE [Suspect]
     Active Substance: PREDNISONE
  207. PREDNISONE [Suspect]
     Active Substance: PREDNISONE
  208. PREDNISONE [Suspect]
     Active Substance: PREDNISONE
  209. PREDNISONE [Suspect]
     Active Substance: PREDNISONE
  210. PREDNISONE [Suspect]
     Active Substance: PREDNISONE
  211. PREDNISONE [Suspect]
     Active Substance: PREDNISONE
  212. PREDNISONE [Suspect]
     Active Substance: PREDNISONE
  213. PREDNISONE [Suspect]
     Active Substance: PREDNISONE
  214. PREDNISONE [Suspect]
     Active Substance: PREDNISONE
  215. PSEUDOEPHEDRINE HYDROCHLORIDE [Suspect]
     Active Substance: PSEUDOEPHEDRINE HYDROCHLORIDE
     Indication: Rheumatoid arthritis
  216. PSEUDOEPHEDRINE HYDROCHLORIDE [Suspect]
     Active Substance: PSEUDOEPHEDRINE HYDROCHLORIDE
  217. PSEUDOEPHEDRINE HYDROCHLORIDE [Suspect]
     Active Substance: PSEUDOEPHEDRINE HYDROCHLORIDE
  218. PSEUDOEPHEDRINE HYDROCHLORIDE [Suspect]
     Active Substance: PSEUDOEPHEDRINE HYDROCHLORIDE
  219. CETIRIZINE HYDROCHLORIDE\PSEUDOEPHEDRINE HYDROCHLORIDE [Suspect]
     Active Substance: CETIRIZINE HYDROCHLORIDE\PSEUDOEPHEDRINE HYDROCHLORIDE
     Indication: Rheumatoid arthritis
  220. CETIRIZINE HYDROCHLORIDE\PSEUDOEPHEDRINE HYDROCHLORIDE [Suspect]
     Active Substance: CETIRIZINE HYDROCHLORIDE\PSEUDOEPHEDRINE HYDROCHLORIDE
  221. CETIRIZINE HYDROCHLORIDE\PSEUDOEPHEDRINE HYDROCHLORIDE [Suspect]
     Active Substance: CETIRIZINE HYDROCHLORIDE\PSEUDOEPHEDRINE HYDROCHLORIDE
  222. REMICADE [Suspect]
     Active Substance: INFLIXIMAB
     Indication: Rheumatoid arthritis
  223. REMICADE [Suspect]
     Active Substance: INFLIXIMAB
  224. REMICADE [Suspect]
     Active Substance: INFLIXIMAB
  225. REMICADE [Suspect]
     Active Substance: INFLIXIMAB
  226. RITUXIMAB [Suspect]
     Active Substance: RITUXIMAB
     Indication: Rheumatoid arthritis
  227. RITUXIMAB [Suspect]
     Active Substance: RITUXIMAB
  228. RITUXIMAB [Suspect]
     Active Substance: RITUXIMAB
  229. RITUXIMAB [Suspect]
     Active Substance: RITUXIMAB
  230. RITUXIMAB [Suspect]
     Active Substance: RITUXIMAB
  231. RITUXIMAB [Suspect]
     Active Substance: RITUXIMAB
  232. SIMPONI [Suspect]
     Active Substance: GOLIMUMAB
     Indication: Rheumatoid arthritis
  233. SIMPONI [Suspect]
     Active Substance: GOLIMUMAB
  234. SIMPONI [Suspect]
     Active Substance: GOLIMUMAB
  235. SIMPONI [Suspect]
     Active Substance: GOLIMUMAB
  236. SIMPONI [Suspect]
     Active Substance: GOLIMUMAB
  237. SIMPONI [Suspect]
     Active Substance: GOLIMUMAB
  238. SIMPONI [Suspect]
     Active Substance: GOLIMUMAB
  239. STELARA [Suspect]
     Active Substance: USTEKINUMAB
     Indication: Rheumatoid arthritis
  240. STELARA [Suspect]
     Active Substance: USTEKINUMAB
  241. STELARA [Suspect]
     Active Substance: USTEKINUMAB
  242. STELARA [Suspect]
     Active Substance: USTEKINUMAB
  243. STELARA [Suspect]
     Active Substance: USTEKINUMAB
  244. STELARA [Suspect]
     Active Substance: USTEKINUMAB
  245. SULFAMETHOXAZOLE [Suspect]
     Active Substance: SULFAMETHOXAZOLE
     Indication: Product used for unknown indication
  246. SULFAMETHOXAZOLE [Suspect]
     Active Substance: SULFAMETHOXAZOLE
  247. SULFAMETHOXAZOLE AND TRIMETHOPRIM [Suspect]
     Active Substance: SULFAMETHOXAZOLE\TRIMETHOPRIM
     Indication: Product used for unknown indication
  248. SULFASALAZINE [Suspect]
     Active Substance: SULFASALAZINE
     Indication: Rheumatoid arthritis
  249. SULFASALAZINE [Suspect]
     Active Substance: SULFASALAZINE
  250. SULFASALAZINE [Suspect]
     Active Substance: SULFASALAZINE
  251. SULFASALAZINE [Suspect]
     Active Substance: SULFASALAZINE
  252. SULFASALAZINE [Suspect]
     Active Substance: SULFASALAZINE
  253. SULFASALAZINE [Suspect]
     Active Substance: SULFASALAZINE
  254. SULFASALAZINE [Suspect]
     Active Substance: SULFASALAZINE
  255. SULFASALAZINE [Suspect]
     Active Substance: SULFASALAZINE
  256. SULFASALAZINE [Suspect]
     Active Substance: SULFASALAZINE
  257. SULFASALAZINE [Suspect]
     Active Substance: SULFASALAZINE
  258. SULFASALAZINE [Suspect]
     Active Substance: SULFASALAZINE
  259. SULFASALAZINE [Suspect]
     Active Substance: SULFASALAZINE
  260. SULFASALAZINE [Suspect]
     Active Substance: SULFASALAZINE
  261. SULFASALAZINE [Suspect]
     Active Substance: SULFASALAZINE
  262. SULFASALAZINE [Suspect]
     Active Substance: SULFASALAZINE
  263. SULFASALAZINE [Suspect]
     Active Substance: SULFASALAZINE
  264. SULFASALAZINE [Suspect]
     Active Substance: SULFASALAZINE
  265. SULFASALAZINE [Suspect]
     Active Substance: SULFASALAZINE
  266. XELJANZ [Suspect]
     Active Substance: TOFACITINIB CITRATE
     Indication: Rheumatoid arthritis
  267. XELJANZ [Suspect]
     Active Substance: TOFACITINIB CITRATE
     Indication: Psoriatic arthropathy
  268. XELJANZ [Suspect]
     Active Substance: TOFACITINIB CITRATE
  269. XELJANZ [Suspect]
     Active Substance: TOFACITINIB CITRATE
  270. XELJANZ [Suspect]
     Active Substance: TOFACITINIB CITRATE
  271. XELJANZ [Suspect]
     Active Substance: TOFACITINIB CITRATE
  272. XELJANZ [Suspect]
     Active Substance: TOFACITINIB CITRATE
  273. XELJANZ [Suspect]
     Active Substance: TOFACITINIB CITRATE
  274. XELJANZ [Suspect]
     Active Substance: TOFACITINIB CITRATE
  275. XELJANZ [Suspect]
     Active Substance: TOFACITINIB CITRATE
  276. XELJANZ [Suspect]
     Active Substance: TOFACITINIB CITRATE
  277. XELJANZ [Suspect]
     Active Substance: TOFACITINIB CITRATE
  278. XELJANZ [Suspect]
     Active Substance: TOFACITINIB CITRATE
  279. XELJANZ [Suspect]
     Active Substance: TOFACITINIB CITRATE
  280. XELJANZ [Suspect]
     Active Substance: TOFACITINIB CITRATE
  281. XELJANZ [Suspect]
     Active Substance: TOFACITINIB CITRATE
  282. CIMZIA [Suspect]
     Active Substance: CERTOLIZUMAB PEGOL
     Indication: Rheumatoid arthritis
  283. CIMZIA [Suspect]
     Active Substance: CERTOLIZUMAB PEGOL
  284. CIMZIA [Suspect]
     Active Substance: CERTOLIZUMAB PEGOL
  285. CIMZIA [Suspect]
     Active Substance: CERTOLIZUMAB PEGOL
  286. CIMZIA [Suspect]
     Active Substance: CERTOLIZUMAB PEGOL
  287. ATIVAN [Concomitant]
     Active Substance: LORAZEPAM
  288. ATASOL [Concomitant]
  289. CAFFEINE [Concomitant]
     Active Substance: CAFFEINE
  290. CODEINE [Concomitant]
     Active Substance: CODEINE
  291. ERGOCALCIFEROL [Concomitant]
     Active Substance: ERGOCALCIFEROL
  292. GLUCOSAMINE [Concomitant]
     Active Substance: GLUCOSAMINE
  293. IBUPROFEN [Concomitant]
     Active Substance: IBUPROFEN
  294. LANSOPRAZOLE [Concomitant]
     Active Substance: LANSOPRAZOLE
  295. PANTOPRAZOLE [Concomitant]
     Active Substance: PANTOPRAZOLE
  296. PANTOPRAZOLE SODIUM [Concomitant]
     Active Substance: PANTOPRAZOLE SODIUM
  297. SULFASALAZINE [Concomitant]
     Active Substance: SULFASALAZINE
  298. FISH OIL [Concomitant]
     Active Substance: FISH OIL
  299. TYLENOL [Concomitant]
     Active Substance: ACETAMINOPHEN
  300. TYLENOL WITH CODEINE [Concomitant]
     Active Substance: ACETAMINOPHEN\CODEINE PHOSPHATE
  301. VITAMIN C [Concomitant]
     Active Substance: ASCORBIC ACID

REACTIONS (14)
  - Off label use [Fatal]
  - Road traffic accident [Fatal]
  - Therapy non-responder [Fatal]
  - Treatment failure [Fatal]
  - Drug hypersensitivity [Fatal]
  - Asthma [Fatal]
  - Autoimmune disorder [Fatal]
  - Chest pain [Fatal]
  - Condition aggravated [Fatal]
  - Contusion [Fatal]
  - Deep vein thrombosis postoperative [Fatal]
  - Gait inability [Fatal]
  - Lower limb fracture [Fatal]
  - Urticaria [Fatal]
